FAERS Safety Report 8921136 (Version 1)
Quarter: 2012Q4

REPORT INFORMATION
  Report Type: 
  Country: US (occurrence: US)
  Receive Date: 20121122
  Receipt Date: 20121122
  Transmission Date: 20130627
  Serious: No
  Sender: FDA-Public Use
  Company Number: US-B.I. PHARMACEUTICALS,INC./RIDGEFIELD-2012-BI-00805BP

PATIENT
  Age: 67 None
  Sex: Female
  Weight: 91 kg

DRUGS (12)
  1. SPIRIVA [Suspect]
     Indication: CHRONIC OBSTRUCTIVE PULMONARY DISEASE
     Dosage: 18 mcg
     Route: 055
     Dates: start: 201204
  2. CARVEDILOL [Concomitant]
     Dosage: 12.5 mg
     Route: 048
     Dates: start: 201201
  3. KLONOPIN [Concomitant]
     Indication: MANIA
     Dosage: 1.5 mg
     Route: 048
     Dates: start: 2009
  4. KLONOPIN [Concomitant]
     Indication: DEPRESSION
  5. LAMICTAL [Concomitant]
     Indication: DEPRESSION
     Dosage: 100 mg
     Route: 048
     Dates: start: 2007
  6. ALLOPURINOL [Concomitant]
     Indication: GOUT
     Dosage: 100 mg
     Route: 048
     Dates: start: 1987
  7. LISINOPRIL [Concomitant]
     Indication: HYPERTENSION
     Route: 048
     Dates: start: 2009, end: 2012
  8. LISINOPRIL [Concomitant]
     Dosage: 5 mg
     Route: 048
     Dates: start: 2012
  9. ISOSORBIDE [Concomitant]
     Indication: HYPERTENSION
     Route: 048
     Dates: start: 1995, end: 2012
  10. ISOSORBIDE [Concomitant]
     Dosage: 100 mg
     Route: 048
     Dates: start: 2012
  11. GLIPIZIDE [Concomitant]
     Indication: BLOOD GLUCOSE INCREASED
     Dosage: 20 mg
     Route: 048
     Dates: start: 2010
  12. SIMVASTATIN [Concomitant]
     Indication: BLOOD CHOLESTEROL INCREASED
     Dosage: 20 mg
     Route: 048
     Dates: start: 2002

REACTIONS (6)
  - Oxygen saturation decreased [Unknown]
  - Blood pressure decreased [Unknown]
  - Insomnia [Not Recovered/Not Resolved]
  - Pruritus generalised [Not Recovered/Not Resolved]
  - Scab [Not Recovered/Not Resolved]
  - Scab [Not Recovered/Not Resolved]
